FAERS Safety Report 5186813-X (Version None)
Quarter: 2006Q4

REPORT INFORMATION
  Report Type: 
  Country: None (occurrence: None)
  Receive Date: 20061220
  Receipt Date: 20061031
  Transmission Date: 20070319
  Serious: No
  Sender: FDA-Public Use
  Company Number: US-AMGEN-KDL198794

PATIENT
  Sex: Female

DRUGS (2)
  1. ENBREL [Suspect]
     Indication: RHEUMATOID ARTHRITIS
     Dates: end: 20060901
  2. METHOTREXATE [Concomitant]

REACTIONS (3)
  - CONDITION AGGRAVATED [None]
  - PLATELET COUNT DECREASED [None]
  - RHEUMATOID ARTHRITIS [None]
